FAERS Safety Report 13121907 (Version 1)
Quarter: 2017Q1

REPORT INFORMATION
  Report Type: Spontaneous
  Country: US (occurrence: US)
  Receive Date: 20170117
  Receipt Date: 20170117
  Transmission Date: 20170428
  Serious: Yes (Hospitalization, Other)
  Sender: FDA-Public Use
  Company Number: US-BRISTOL-MYERS SQUIBB COMPANY-BMS-2017-003114

PATIENT
  Age: 82 Year
  Sex: Female
  Weight: 89 kg

DRUGS (1)
  1. ELIQUIS [Suspect]
     Active Substance: APIXABAN
     Indication: CEREBROVASCULAR ACCIDENT PROPHYLAXIS
     Dosage: 2.5 MG, BID
     Route: 065
     Dates: start: 20160513, end: 20161128

REACTIONS (9)
  - Rib fracture [Unknown]
  - Limb injury [Unknown]
  - Road traffic accident [Unknown]
  - Haematoma [Unknown]
  - Laceration [Unknown]
  - Subarachnoid haemorrhage [Unknown]
  - Subdural haematoma [Unknown]
  - Periorbital haematoma [Unknown]
  - Fracture [Unknown]

NARRATIVE: CASE EVENT DATE: 20161123
